FAERS Safety Report 4752301-5 (Version None)
Quarter: 2005Q3

REPORT INFORMATION
  Report Type: 
  Country: None (occurrence: None)
  Receive Date: 20050825
  Receipt Date: 20050817
  Transmission Date: 20060218
  Serious: Yes (Other)
  Sender: FDA-Public Use
  Company Number: 2005-07-1274

PATIENT
  Age: 37 Year
  Sex: Female
  Weight: 157.3 kg

DRUGS (9)
  1. PAXIL [Suspect]
     Indication: DEPRESSION
     Dosage: 20MG UNKNOWN
     Route: 048
  2. LITHIUM CARBONATE [Suspect]
     Indication: BIPOLAR DISORDER
     Dosage: 150MG UNKNOWN
     Route: 048
  3. PEGYLATED INTERFERON ALPHA 2B [Suspect]
     Dosage: 150MCG WEEKLY
     Route: 058
     Dates: start: 20050509
  4. REDIPRED [Suspect]
     Dosage: 150MCG WEEKLY
     Route: 058
     Dates: start: 20050509
  5. RIBAVIRIN [Suspect]
     Indication: HEPATITIS C
     Dosage: 1200MG PER DAY
     Route: 048
     Dates: start: 20050509
  6. CARDIZEM [Concomitant]
     Dosage: 30MG UNKNOWN
     Route: 048
  7. MAXALT [Concomitant]
     Dosage: 5MG UNKNOWN
     Route: 048
  8. VICODIN [Concomitant]
     Dosage: 500MG FIVE TIMES PER DAY
     Route: 048
  9. NEUPOGEN [Concomitant]

REACTIONS (4)
  - DIZZINESS [None]
  - DYSPNOEA [None]
  - HALLUCINATION [None]
  - SUICIDAL IDEATION [None]
